FAERS Safety Report 6311378-6 (Version None)
Quarter: 2009Q3

REPORT INFORMATION
  Report Type: 
  Country: None (occurrence: None)
  Receive Date: 20090817
  Receipt Date: 20090807
  Transmission Date: 20100115
  Serious: Yes (Other)
  Sender: FDA-Public Use
  Company Number: PHHY2009GB31840

PATIENT
  Sex: Female

DRUGS (1)
  1. TEGRETOL [Suspect]
     Indication: EPILEPSY
     Dosage: UNK

REACTIONS (5)
  - ASTHMA [None]
  - CARDIAC DISORDER [None]
  - DYSPNOEA [None]
  - HEART RATE DECREASED [None]
  - THROMBOSIS [None]
